FAERS Safety Report 25956270 (Version 1)
Quarter: 2025Q4

REPORT INFORMATION
  Report Type: Report from Study
  Country: EU (occurrence: EU)
  Receive Date: 20251024
  Receipt Date: 20251024
  Transmission Date: 20260119
  Serious: Yes (Hospitalization)
  Sender: TEVA
  Company Number: EU-TEVA-VS-3380959

PATIENT
  Age: 78 Year
  Sex: Male
  Weight: 70 kg

DRUGS (13)
  1. FAMOTIDINE [Suspect]
     Active Substance: FAMOTIDINE
     Indication: Product used for unknown indication
     Route: 048
     Dates: start: 20250326, end: 20250326
  2. MONTELUKAST [Suspect]
     Active Substance: MONTELUKAST
     Indication: Premedication
     Dosage: SINGLE
     Route: 048
     Dates: start: 20250324, end: 20250324
  3. MONTELUKAST [Suspect]
     Active Substance: MONTELUKAST
     Indication: Premedication
     Dosage: SINGLE
     Route: 048
     Dates: start: 20250324, end: 20250324
  4. MONTELUKAST [Suspect]
     Active Substance: MONTELUKAST
     Indication: Premedication
     Dosage: SINGLE
     Route: 048
     Dates: start: 20250326, end: 20250326
  5. DEXAMETHASONE [Suspect]
     Active Substance: DEXAMETHASONE
     Indication: Product used for unknown indication
     Dosage: SINGLE
     Route: 048
     Dates: start: 20250325, end: 20250325
  6. DEXAMETHASONE [Suspect]
     Active Substance: DEXAMETHASONE
     Indication: Product used for unknown indication
     Dosage: SINGLE
     Route: 042
     Dates: start: 20250326, end: 20250326
  7. PEMBROLIZUMAB [Suspect]
     Active Substance: PEMBROLIZUMAB
     Indication: Squamous cell carcinoma of head and neck
     Route: 042
     Dates: start: 20250326
  8. DIPHENHYDRAMINE [Suspect]
     Active Substance: DIPHENHYDRAMINE
     Indication: Product used for unknown indication
     Dosage: SINGLE
     Route: 048
     Dates: start: 20250326, end: 20250326
  9. ACETAMINOPHEN [Suspect]
     Active Substance: ACETAMINOPHEN
     Indication: Product used for unknown indication
     Dosage: SINGLE
     Route: 042
     Dates: start: 20250326, end: 20250326
  10. APIXABAN [Concomitant]
     Active Substance: APIXABAN
     Indication: Product used for unknown indication
  11. FLECAINIDE [Concomitant]
     Active Substance: FLECAINIDE
     Indication: Product used for unknown indication
  12. BISOPROLOL [Concomitant]
     Active Substance: BISOPROLOL
     Indication: Product used for unknown indication
  13. ATORVASTATIN [Concomitant]
     Active Substance: ATORVASTATIN
     Indication: Product used for unknown indication

REACTIONS (1)
  - Confusional state [Recovering/Resolving]

NARRATIVE: CASE EVENT DATE: 20250327
